FAERS Safety Report 17971416 (Version 7)
Quarter: 2022Q1

REPORT INFORMATION
  Report Type: Report from Study
  Country: JP (occurrence: JP)
  Receive Date: 20200701
  Receipt Date: 20220131
  Transmission Date: 20220424
  Serious: Yes (Hospitalization)
  Sender: FDA-Public Use
  Company Number: JP-EISAI-202002072_LEN-HCC_P_1

PATIENT
  Age: 90 Year
  Sex: Male
  Weight: 58 kg

DRUGS (22)
  1. LENVATINIB [Suspect]
     Active Substance: LENVATINIB
     Indication: Hepatocellular carcinoma
     Route: 048
     Dates: start: 20190312, end: 20190324
  2. LENVATINIB [Suspect]
     Active Substance: LENVATINIB
     Route: 048
     Dates: start: 20190405, end: 20190512
  3. LENVATINIB [Suspect]
     Active Substance: LENVATINIB
     Route: 048
     Dates: start: 20190513, end: 20191006
  4. LENVATINIB [Suspect]
     Active Substance: LENVATINIB
     Route: 048
     Dates: start: 20191015, end: 20191016
  5. LENVATINIB [Suspect]
     Active Substance: LENVATINIB
     Route: 048
     Dates: start: 20191105, end: 20191129
  6. LENVATINIB [Suspect]
     Active Substance: LENVATINIB
     Route: 048
     Dates: start: 20191209, end: 20191222
  7. LENVATINIB [Suspect]
     Active Substance: LENVATINIB
     Route: 048
     Dates: start: 20200106, end: 20200601
  8. LENVATINIB [Suspect]
     Active Substance: LENVATINIB
     Route: 048
     Dates: start: 20200611, end: 20200618
  9. MAGNESIUM OXIDE [Concomitant]
     Active Substance: MAGNESIUM OXIDE
     Indication: Constipation
     Route: 048
     Dates: start: 20190322, end: 20200624
  10. ISOLEUCINE\LEUCINE\VALINE [Concomitant]
     Active Substance: ISOLEUCINE\LEUCINE\VALINE
     Indication: Hypoalbuminaemia
     Route: 048
     Dates: start: 20190327
  11. LEVOCARNITINE HYDROCHLORIDE [Concomitant]
     Active Substance: LEVOCARNITINE HYDROCHLORIDE
     Indication: Carnitine deficiency
     Route: 048
     Dates: start: 20190409
  12. LEVOTHYROXINE [Concomitant]
     Active Substance: LEVOTHYROXINE
     Route: 048
     Dates: start: 20190410, end: 20200621
  13. AMLODIPINE BESYLATE [Concomitant]
     Active Substance: AMLODIPINE BESYLATE
     Indication: Hypertension
     Route: 048
     Dates: start: 20190408
  14. SENNOSIDES [Concomitant]
     Active Substance: SENNOSIDES
     Indication: Constipation
     Route: 048
     Dates: start: 20190527
  15. HERBAL NOS [Concomitant]
     Active Substance: HERBALS
     Indication: Decreased appetite
     Route: 048
     Dates: start: 20190617, end: 20200701
  16. SPIRONOLACTONE [Concomitant]
     Active Substance: SPIRONOLACTONE
     Indication: Ascites
     Route: 048
     Dates: start: 20191007, end: 20200706
  17. FAMOTIDINE [Concomitant]
     Active Substance: FAMOTIDINE
     Route: 065
  18. ROZEREM [Concomitant]
     Active Substance: RAMELTEON
     Route: 065
  19. LOSARTAN POTASSIUM [Concomitant]
     Active Substance: LOSARTAN POTASSIUM
     Indication: Hypertension
     Route: 048
     Dates: start: 20200502
  20. TENELIGLIPTIN [Concomitant]
     Active Substance: TENELIGLIPTIN
     Indication: Type 2 diabetes mellitus
     Route: 048
     Dates: start: 20200614, end: 20200619
  21. ELDECALCITOL [Concomitant]
     Active Substance: ELDECALCITOL
     Indication: Osteoporosis
     Route: 048
     Dates: start: 20200423
  22. AZOTESIN [Concomitant]
     Indication: Conjunctivitis
     Route: 047

REACTIONS (1)
  - Decreased appetite [Not Recovered/Not Resolved]

NARRATIVE: CASE EVENT DATE: 20200619
